FAERS Safety Report 16135616 (Version 2)
Quarter: 2019Q2

REPORT INFORMATION
  Report Type: Spontaneous
  Country: JP (occurrence: JP)
  Receive Date: 20190329
  Receipt Date: 20190423
  Transmission Date: 20190711
  Serious: Yes (Life-Threatening)
  Sender: FDA-Public Use
  Company Number: JP-B.I. PHARMACEUTICALS,INC./RIDGEFIELD-2019-NB-001408

PATIENT
  Age: 87 Year
  Sex: Male

DRUGS (2)
  1. PRAZAXA [Suspect]
     Active Substance: DABIGATRAN ETEXILATE MESYLATE
     Route: 048
  2. PRAZAXA [Suspect]
     Active Substance: DABIGATRAN ETEXILATE MESYLATE
     Indication: ATRIAL FIBRILLATION
     Route: 048
     Dates: end: 20190326

REACTIONS (4)
  - Shock haemorrhagic [Recovered/Resolved]
  - Fall [Recovered/Resolved]
  - Respiratory failure [Recovered/Resolved]
  - Traumatic haemothorax [Recovered/Resolved]

NARRATIVE: CASE EVENT DATE: 20190313
